FAERS Safety Report 24741380 (Version 3)
Quarter: 2025Q1

REPORT INFORMATION
  Report Type: Spontaneous
  Country: US (occurrence: US)
  Receive Date: 20241217
  Receipt Date: 20250131
  Transmission Date: 20250409
  Serious: No
  Sender: ROCHE
  Company Number: US-ROCHE-10000156773

PATIENT
  Age: 71 Year
  Sex: Female
  Weight: 63.78 kg

DRUGS (5)
  1. RITUXAN [Suspect]
     Active Substance: RITUXIMAB
     Indication: Central nervous system lymphoma
     Route: 065
     Dates: start: 20241027
  2. RITUXAN [Suspect]
     Active Substance: RITUXIMAB
     Route: 065
     Dates: start: 20241104
  3. TEMODAR [Concomitant]
     Active Substance: TEMOZOLOMIDE
     Indication: Non-Hodgkin^s lymphoma
  4. METHOTREXATE [Concomitant]
     Active Substance: METHOTREXATE
     Indication: Non-Hodgkin^s lymphoma
  5. LEUCOVORIN [Concomitant]
     Active Substance: LEUCOVORIN\LEUCOVORIN CALCIUM
     Indication: Non-Hodgkin^s lymphoma

REACTIONS (1)
  - Thrombocytopenia [Recovered/Resolved]
